FAERS Safety Report 16591102 (Version 1)
Quarter: 2019Q3

REPORT INFORMATION
  Report Type: Spontaneous
  Country: US (occurrence: US)
  Receive Date: 20190604
  Receipt Date: 20190604
  Transmission Date: 20191004
  Serious: Yes (Disabling, Other)
  Sender: FDA-Public Use
  Company Number: None

PATIENT
  Age: 68 Year
  Sex: Female
  Weight: 60.78 kg

DRUGS (9)
  1. COENZYME Q10 [Concomitant]
     Active Substance: UBIDECARENONE
  2. CALCIUM [Concomitant]
     Active Substance: CALCIUM
  3. MULTI-VITAMIN [Concomitant]
     Active Substance: .ALPHA.-TOCOPHEROL ACETATE, DL-\ASCORBIC ACID\CYANOCOBALAMIN\FLUORIDE ION\FOLIC ACID\NIACIN\PYRIDOXINE\RIBOFLAVIN\THIAMINE\VITAMIN A\VITAMIN D
  4. LOSARTAN. [Concomitant]
     Active Substance: LOSARTAN
  5. HYDROCHLOROTHIAZIDE. [Concomitant]
     Active Substance: HYDROCHLOROTHIAZIDE
  6. TRIAMCINOL [Concomitant]
  7. LOSARTAN TABS 100MG  GENERIC FOR: COZAAR TABS [Suspect]
     Active Substance: LOSARTAN
     Indication: HYPERTENSION
     Dosage: ?          QUANTITY:100 MG MILLIGRAM(S);?
     Route: 048
     Dates: start: 20190423, end: 20190516
  8. SIMVASTATIN. [Concomitant]
     Active Substance: SIMVASTATIN
  9. BETAMETHAS [Concomitant]

REACTIONS (5)
  - Tinnitus [None]
  - Fatigue [None]
  - Product substitution issue [None]
  - Gait disturbance [None]
  - Oedema peripheral [None]

NARRATIVE: CASE EVENT DATE: 20190423
